FAERS Safety Report 10236266 (Version 1)
Quarter: 2014Q1

REPORT INFORMATION
  Report Type: Spontaneous
  Country: US (occurrence: None)
  Receive Date: 20140306
  Receipt Date: 20140306
  Transmission Date: 20141002
  Serious: Yes (Hospitalization)
  Sender: FDA-Public Use
  Company Number: 163-21880-13034656

PATIENT
  Age: 87 Year
  Sex: Male

DRUGS (11)
  1. REVLIMID (LENALIDOMIDE) (10 MILLIGRAM, CAPSULES) [Suspect]
     Indication: PLASMA CELL MYELOMA
     Route: 048
     Dates: start: 20120703
  2. COLACE (DOCUSATE SODIUM) (UNKNOWN) [Concomitant]
  3. FOLIC ACID (FOLIC ACID) (UNKNOWN) [Concomitant]
  4. LEXAPRO (ESCITALOPRAM OXALATE) (UNKNOWN) [Concomitant]
  5. LOTREL (LOTREL) (UNKNOWN) [Concomitant]
  6. PROSCAR (FINASTERIDE) (UNKNOWN) [Concomitant]
  7. PROVENTIL (SALBUTAMOL SULFATE) (UNKNOWN) [Concomitant]
  8. DURAGESIC (FENTANYL) (POULTICE OR PATCH) [Concomitant]
  9. LORTAB (VICODIN (UNKNOWN) [Concomitant]
  10. CEFTIN (CEFUROXIME AXETIL) (UNKNOWN) [Concomitant]
  11. ARICEPT (DONEPEZIL HYDROCHLORIDE) (UNKNOWN) [Concomitant]

REACTIONS (2)
  - Pneumonia bacterial [None]
  - Sepsis [None]
